FAERS Safety Report 22169795 (Version 1)
Quarter: 2023Q2

REPORT INFORMATION
  Report Type: Spontaneous
  Country: CN (occurrence: CN)
  Receive Date: 20230404
  Receipt Date: 20230404
  Transmission Date: 20230721
  Serious: Yes (Hospitalization)
  Sender: FDA-Public Use
  Company Number: CN-AstraZeneca-2023A070375

PATIENT
  Age: 52 Year
  Sex: Male

DRUGS (1)
  1. METOPROLOL SUCCINATE [Suspect]
     Active Substance: METOPROLOL SUCCINATE
     Indication: Hypertension
     Route: 048
     Dates: start: 20230301, end: 20230301

REACTIONS (5)
  - Metamorphopsia [Recovering/Resolving]
  - Amaurosis [Recovering/Resolving]
  - Vision blurred [Recovering/Resolving]
  - Dizziness [Recovering/Resolving]
  - Fatigue [Recovering/Resolving]

NARRATIVE: CASE EVENT DATE: 20230301
